FAERS Safety Report 13050829 (Version 1)
Quarter: 2016Q4

REPORT INFORMATION
  Report Type: Spontaneous
  Country: US (occurrence: US)
  Receive Date: 20161221
  Receipt Date: 20161221
  Transmission Date: 20170207
  Serious: No
  Sender: FDA-Public Use
  Company Number: US-ENDO PHARMACEUTICALS INC.-2016-001831

PATIENT
  Age: 38 Year
  Sex: Male

DRUGS (4)
  1. OPANA ER [Suspect]
     Active Substance: OXYMORPHONE HYDROCHLORIDE
     Indication: BACK PAIN
     Dosage: UNKNOWN DOSE; TITRATION IN PROCESS
     Route: 048
     Dates: start: 2016, end: 2016
  2. OXYMORPHONE ER [Suspect]
     Active Substance: OXYMORPHONE
     Indication: BACK PAIN
     Dosage: UNKNOWN DOSE; TITRATION IN PROCESS
     Route: 048
     Dates: start: 2016, end: 2016
  3. OXYMORPHONE ER [Suspect]
     Active Substance: OXYMORPHONE
     Route: 048
     Dates: start: 2016
  4. OPANA ER [Suspect]
     Active Substance: OXYMORPHONE HYDROCHLORIDE
     Route: 048
     Dates: start: 2016

REACTIONS (1)
  - Drug ineffective [Unknown]

NARRATIVE: CASE EVENT DATE: 2016
